FAERS Safety Report 8326564 (Version 2)
Quarter: 2013Q1

REPORT INFORMATION
  Report Type: Spontaneous
  Country: None (occurrence: None)
  Receive Date: 20111228
  Receipt Date: 20130329
  Transmission Date: 20140127
  Serious: Yes (Life-Threatening, Hospitalization)
  Sender: FDA-Public Use
  Company Number: AUR-APL-2011-06165

PATIENT
  Age: 40 Year
  Sex: Male
  Weight: 78 kg

DRUGS (8)
  1. FLUOXETINE [Suspect]
     Indication: ANXIETY
     Dosage: 20 MG, ORAL
     Route: 048
     Dates: start: 20111003
  2. CHANTIX [Suspect]
     Indication: SMOKING CESSATION THERAPY
     Dosage: STOPPED
     Route: 048
  3. ACIDEX SUSPENSION (RANITIDINE HYDROCHLORIDE) [Concomitant]
  4. ASPIRIN (ACETYLSALICYLIC ACID) [Concomitant]
  5. DOXAZOSIN MESYLATE [Concomitant]
  6. EPROSARTAN (EPROSARTAN) [Concomitant]
  7. FELODIPINE [Concomitant]
  8. LANSOPRAZOLE (LANSOPRAZOLE) [Concomitant]

REACTIONS (4)
  - Intestinal ischaemia [None]
  - Peripheral ischaemia [None]
  - Renal ischaemia [None]
  - Embolism [None]
